FAERS Safety Report 7804677-X (Version None)
Quarter: 2011Q4

REPORT INFORMATION
  Report Type: 
  Country: None (occurrence: None)
  Receive Date: 20111010
  Receipt Date: 20111003
  Transmission Date: 20120403
  Serious: Yes (Hospitalization)
  Sender: FDA-Public Use
  Company Number: HK-SANOFI-AVENTIS-2011SA064572

PATIENT
  Sex: Male

DRUGS (2)
  1. ASPIRIN [Concomitant]
     Indication: TRANSIENT ISCHAEMIC ATTACK
     Dates: end: 20090101
  2. PLAVIX [Suspect]
     Indication: TRANSIENT ISCHAEMIC ATTACK
     Route: 048
     Dates: start: 20090101, end: 20100101

REACTIONS (5)
  - DIZZINESS [None]
  - CONTUSION [None]
  - GINGIVAL BLEEDING [None]
  - EPISTAXIS [None]
  - OFF LABEL USE [None]
